FAERS Safety Report 15979688 (Version 2)
Quarter: 2019Q1

REPORT INFORMATION
  Report Type: Spontaneous
  Country: US (occurrence: US)
  Receive Date: 20190219
  Receipt Date: 20190313
  Transmission Date: 20190418
  Serious: Yes (Hospitalization, Other)
  Sender: FDA-Public Use
  Company Number: US-ASTRAZENECA-2019SE24839

PATIENT
  Sex: Female
  Weight: 53.5 kg

DRUGS (1)
  1. TUDORZA PRESSAIR [Suspect]
     Active Substance: ACLIDINIUM BROMIDE
     Indication: CHRONIC OBSTRUCTIVE PULMONARY DISEASE
     Route: 055
     Dates: start: 2017

REACTIONS (6)
  - Pulmonary oedema [Unknown]
  - Cardiac disorder [Unknown]
  - Intentional device misuse [Unknown]
  - Urosepsis [Unknown]
  - Device malfunction [Unknown]
  - Device issue [Unknown]
